FAERS Safety Report 18534061 (Version 1)
Quarter: 2020Q4

REPORT INFORMATION
  Report Type: Spontaneous
  Country: SE (occurrence: SE)
  Receive Date: 20201123
  Receipt Date: 20201123
  Transmission Date: 20210114
  Serious: Yes (Other)
  Sender: FDA-Public Use
  Company Number: SE-PFIZER INC-2020456654

PATIENT
  Age: 72 Year
  Sex: Female

DRUGS (4)
  1. SPIRONOLACTONE. [Suspect]
     Active Substance: SPIRONOLACTONE
     Dosage: UNK
  2. VELTASSA [Suspect]
     Active Substance: PATIROMER
     Dosage: UNK
     Route: 048
     Dates: start: 20200603
  3. VELTASSA [Suspect]
     Active Substance: PATIROMER
     Dosage: 8.4 G, UNK
     Dates: start: 2020
  4. VELTASSA [Suspect]
     Active Substance: PATIROMER
     Dosage: 16.8 G, UNK
     Dates: start: 2020

REACTIONS (4)
  - Haematochezia [Unknown]
  - Colonoscopy abnormal [Unknown]
  - Diarrhoea [Unknown]
  - Blood potassium increased [Unknown]

NARRATIVE: CASE EVENT DATE: 2020
